FAERS Safety Report 5691421-8 (Version None)
Quarter: 2008Q2

REPORT INFORMATION
  Report Type: 
  Country: None (occurrence: None)
  Receive Date: 20080401
  Receipt Date: 20080401
  Transmission Date: 20081010
  Serious: Yes (Other)
  Sender: FDA-Public Use
  Company Number: None

PATIENT
  Age: 40 Year
  Sex: Male
  Weight: 101 kg

DRUGS (2)
  1. VARENICLINE [Suspect]
     Indication: SMOKING CESSATION THERAPY
     Dosage: 0.5MG EVERY DAY PO
     Route: 048
     Dates: start: 20071224, end: 20080104
  2. METHYLPHENIDATE HCL [Suspect]
     Indication: POST-TRAUMATIC STRESS DISORDER
     Dosage: 10MG BID PO
     Route: 048
     Dates: start: 20071219, end: 20080103

REACTIONS (8)
  - AGITATION [None]
  - ANXIETY [None]
  - HEART RATE INCREASED [None]
  - INCORRECT DOSE ADMINISTERED [None]
  - INSOMNIA [None]
  - IRRITABILITY [None]
  - MOOD SWINGS [None]
  - SUSPICIOUSNESS [None]
